FAERS Safety Report 4607184-0 (Version None)
Quarter: 2005Q1

REPORT INFORMATION
  Report Type: 
  Country: None (occurrence: None)
  Receive Date: 20050309
  Receipt Date: 20050222
  Transmission Date: 20050727
  Serious: Yes (Other)
  Sender: FDA-Public Use
  Company Number: USA050291495

PATIENT
  Age: 31 Year
  Sex: Female
  Weight: 64 kg

DRUGS (5)
  1. CYMBALTA [Suspect]
     Indication: DEPRESSION
     Dosage: 60 MG DAY
     Dates: start: 20050101, end: 20050218
  2. ADDERALL XR 10 [Concomitant]
  3. ETHINYL ESTRADIOL W/NORGESTREL [Concomitant]
  4. ALPRAZOLAM [Concomitant]
  5. IBUPROFEN [Concomitant]

REACTIONS (3)
  - GRAND MAL CONVULSION [None]
  - MYALGIA [None]
  - URINARY TRACT INFECTION [None]
